FAERS Safety Report 7952332-8 (Version None)
Quarter: 2011Q4

REPORT INFORMATION
  Report Type: 
  Country: None (occurrence: None)
  Receive Date: 20111201
  Receipt Date: 20111124
  Transmission Date: 20120403
  Serious: Yes (Other)
  Sender: FDA-Public Use
  Company Number: JP-PFIZER INC-2011266520

PATIENT
  Age: 70 Year
  Sex: Male
  Weight: 60.65 kg

DRUGS (5)
  1. ZYVOX [Suspect]
     Indication: STAPHYLOCOCCAL INFECTION
     Dosage: 1200 MG, DAILY
     Route: 048
     Dates: start: 20111031, end: 20111102
  2. TRAMADOL HYDROCHLORIDE [Suspect]
     Indication: PAIN
     Dosage: 25 MG, AS NEEDED
     Route: 048
     Dates: start: 20111030
  3. TRAMADOL HYDROCHLORIDE [Suspect]
     Dosage: 25 MG, 2X/DAY
     Route: 048
     Dates: start: 20111031, end: 20111101
  4. TRAZODONE HYDROCHLORIDE [Suspect]
     Indication: SLEEP DISORDER
     Dosage: 25 MG, 1X/DAY
     Route: 048
     Dates: start: 20111030, end: 20111031
  5. ZOLPIDEM [Concomitant]
     Indication: SLEEP DISORDER
     Dosage: 10 MG, 1X/DAY
     Route: 048
     Dates: start: 20111030, end: 20111031

REACTIONS (1)
  - DELIRIUM [None]
